FAERS Safety Report 24247086 (Version 2)
Quarter: 2024Q3

REPORT INFORMATION
  Report Type: Spontaneous
  Country: DE (occurrence: DE)
  Receive Date: 20240826
  Receipt Date: 20240903
  Transmission Date: 20241017
  Serious: Yes (Other)
  Sender: JOHNSON AND JOHNSON
  Company Number: DE-BAYER-2024A120397

PATIENT
  Age: 86 Year
  Sex: Female

DRUGS (2)
  1. XARELTO [Suspect]
     Active Substance: RIVAROXABAN
     Indication: Anticoagulant therapy
     Dosage: 20 MG
     Route: 048
  2. ETORICOX ABZ [Concomitant]
     Dosage: 90 MG

REACTIONS (1)
  - Rheumatic disorder [Unknown]

NARRATIVE: CASE EVENT DATE: 20240819
